FAERS Safety Report 6668051-4 (Version None)
Quarter: 2010Q2

REPORT INFORMATION
  Report Type: 
  Country: None (occurrence: None)
  Receive Date: 20100405
  Receipt Date: 20100326
  Transmission Date: 20101027
  Serious: Yes (Other)
  Sender: FDA-Public Use
  Company Number: US-ABBOTT-10P-163-0635047-00

PATIENT
  Sex: Male
  Weight: 95.794 kg

DRUGS (3)
  1. NIASPAN [Suspect]
     Indication: BLOOD CHOLESTEROL INCREASED
     Dosage: EVERY NIGHT
     Dates: start: 20100201, end: 20100312
  2. TRILIPIX [Concomitant]
     Indication: BLOOD CHOLESTEROL INCREASED
     Dates: start: 20100323
  3. ADVIL [Concomitant]
     Indication: DRUG USE FOR UNKNOWN INDICATION

REACTIONS (5)
  - FULL BLOOD COUNT DECREASED [None]
  - HEAD INJURY [None]
  - PEPTIC ULCER [None]
  - SYNCOPE [None]
  - UPPER GASTROINTESTINAL HAEMORRHAGE [None]
